FAERS Safety Report 10754436 (Version 1)
Quarter: 2015Q1

REPORT INFORMATION
  Report Type: Spontaneous
  Country: US (occurrence: None)
  Receive Date: 20150130
  Receipt Date: 20150130
  Transmission Date: 20150721
  Serious: Yes (Life-Threatening, Hospitalization, Disabling, Congenital Anomaly)
  Sender: FDA-Public Use
  Company Number: None

PATIENT
  Age: 41 Year
  Sex: Female
  Weight: 77.11 kg

DRUGS (4)
  1. SYNTHROID [Suspect]
     Active Substance: LEVOTHYROXINE SODIUM
     Indication: RADIOTHERAPY
     Route: 048
     Dates: start: 19990110, end: 20140801
  2. SYNTHROID [Suspect]
     Active Substance: LEVOTHYROXINE SODIUM
     Route: 048
     Dates: start: 19990110, end: 20140801
  3. SYNTHROID [Suspect]
     Active Substance: LEVOTHYROXINE SODIUM
     Indication: BASEDOW^S DISEASE
     Route: 048
     Dates: start: 19990110, end: 20140801
  4. SYNTHROID [Suspect]
     Active Substance: LEVOTHYROXINE SODIUM
     Indication: HYPOTHYROIDISM
     Route: 048
     Dates: start: 19990110, end: 20140801

REACTIONS (17)
  - Insomnia [None]
  - Food intolerance [None]
  - Depression [None]
  - Alopecia [None]
  - Fatigue [None]
  - Menstrual disorder [None]
  - Onychoclasis [None]
  - Palpitations [None]
  - Hypertension [None]
  - Multiple allergies [None]
  - Feeling abnormal [None]
  - Tooth disorder [None]
  - Dry skin [None]
  - Acne [None]
  - Weight decreased [None]
  - Premature ageing [None]
  - Hair growth abnormal [None]

NARRATIVE: CASE EVENT DATE: 20140802
